FAERS Safety Report 5400045-9 (Version None)
Quarter: 2007Q3

REPORT INFORMATION
  Report Type: 
  Country: None (occurrence: None)
  Receive Date: 20070726
  Receipt Date: 20070726
  Transmission Date: 20080115
  Serious: Yes (Other)
  Sender: FDA-Public Use
  Company Number: None

PATIENT
  Age: 50 Year
  Sex: Male
  Weight: 61.2356 kg

DRUGS (2)
  1. LEVAQUIN [Suspect]
     Indication: SINUSITIS
     Dosage: 1 TABLET DAILY PO
     Route: 048
     Dates: start: 20070716, end: 20070719
  2. METHYLPREDNISOLONE  4MG  TRIGEN LABORATORIES, INC. [Suspect]
     Indication: SINUSITIS
     Dosage: PRED PACK - 6 DAY  DAILY  PO
     Route: 048
     Dates: start: 20070716, end: 20070719

REACTIONS (1)
  - TENDONITIS [None]
